FAERS Safety Report 4763695-9 (Version None)
Quarter: 2005Q3

REPORT INFORMATION
  Report Type: 
  Country: None (occurrence: None)
  Receive Date: 20050908
  Receipt Date: 20041203
  Transmission Date: 20060218
  Serious: Yes (Other)
  Sender: FDA-Public Use
  Company Number: GB-GLAXOSMITHKLINE-B0359748A

PATIENT
  Sex: Male

DRUGS (3)
  1. SEROXAT [Suspect]
     Indication: ANXIETY
     Dosage: 20MG PER DAY
     Route: 065
     Dates: start: 20010425
  2. PARACETAMOL [Suspect]
     Route: 065
  3. ALCOHOL [Suspect]
     Route: 065

REACTIONS (3)
  - ILL-DEFINED DISORDER [None]
  - OVERDOSE [None]
  - SUICIDE ATTEMPT [None]
